FAERS Safety Report 5376375-6 (Version None)
Quarter: 2007Q3

REPORT INFORMATION
  Report Type: 
  Country: None (occurrence: None)
  Receive Date: 20070702
  Receipt Date: 20070621
  Transmission Date: 20080115
  Serious: Yes (Hospitalization, Other)
  Sender: FDA-Public Use
  Company Number: JP-PFIZER INC-2007045442

PATIENT
  Sex: Male

DRUGS (4)
  1. NORVASC [Suspect]
     Indication: HYPERTENSION
     Dosage: DAILY DOSE:5MG-FREQ:DAILY
     Route: 048
  2. BEZATOL [Concomitant]
  3. BEZAFIBRATE [Concomitant]
     Route: 048
     Dates: start: 20070401
  4. ASPIRIN [Concomitant]
     Route: 048
     Dates: end: 20070401

REACTIONS (1)
  - HAEMOLYTIC ANAEMIA [None]
